FAERS Safety Report 9574623 (Version 2)
Quarter: 2013Q4

REPORT INFORMATION
  Report Type: Spontaneous
  Country: JP (occurrence: JP)
  Receive Date: 20131001
  Receipt Date: 20131023
  Transmission Date: 20140711
  Serious: Yes (Other)
  Sender: FDA-Public Use
  Company Number: JP-ELI_LILLY_AND_COMPANY-JP201309008407

PATIENT
  Age: 8 Year
  Sex: Male

DRUGS (5)
  1. STRATTERA [Suspect]
     Indication: ATTENTION DEFICIT/HYPERACTIVITY DISORDER
     Dosage: 20 MG, UNK
     Route: 048
     Dates: end: 20130828
  2. STRATTERA [Suspect]
     Dosage: 30 MG, QD
     Route: 048
     Dates: start: 20130829, end: 20130920
  3. STRATTERA [Suspect]
     Dosage: 20 MG, QD
     Route: 048
     Dates: start: 20130921
  4. STRATTERA [Suspect]
     Dosage: 0.5 MG/KG, UNKNOWN
  5. RISPERDAL [Concomitant]
     Route: 048

REACTIONS (3)
  - Hyperkinesia [Recovered/Resolved]
  - Aggression [Recovered/Resolved]
  - Drug ineffective [Unknown]
